FAERS Safety Report 8182705-2 (Version None)
Quarter: 2012Q1

REPORT INFORMATION
  Report Type: 
  Country: None (occurrence: None)
  Receive Date: 20120305
  Receipt Date: 20120229
  Transmission Date: 20120608
  Serious: No
  Sender: FDA-Public Use
  Company Number: US-PFIZER INC-2012054496

PATIENT
  Sex: Female
  Weight: 129 kg

DRUGS (6)
  1. PROZAC [Concomitant]
     Dosage: 40 MG
  2. BUSPAR [Concomitant]
     Dosage: 15 MG
  3. MULTI-VITAMINS [Concomitant]
     Dosage: UNK
  4. LYRICA [Suspect]
     Dosage: 75 MG, 2X/DAY
     Route: 048
     Dates: start: 20110101
  5. LYRICA [Suspect]
     Indication: FIBROMYALGIA
     Dosage: 25 MG, 2X/DAY
     Route: 048
     Dates: start: 20110101, end: 20110101
  6. LYRICA [Suspect]
     Dosage: 150 MG, 4X/DAY
     Route: 048

REACTIONS (1)
  - FEELING ABNORMAL [None]
